FAERS Safety Report 13490313 (Version 1)
Quarter: 2017Q2

REPORT INFORMATION
  Report Type: Spontaneous
  Country: US (occurrence: US)
  Receive Date: 20170426
  Receipt Date: 20170426
  Transmission Date: 20170830
  Serious: No
  Sender: FDA-Public Use
  Company Number: US-BIOGEN-2017BI00390038

PATIENT
  Sex: Female

DRUGS (1)
  1. AVONEX [Suspect]
     Active Substance: INTERFERON BETA-1A
     Indication: MULTIPLE SCLEROSIS
     Route: 065

REACTIONS (6)
  - Vision blurred [Unknown]
  - Musculoskeletal disorder [Unknown]
  - Muscle tightness [Unknown]
  - Memory impairment [Unknown]
  - Arthropathy [Unknown]
  - Injection site injury [Unknown]
